FAERS Safety Report 9729810 (Version 3)
Quarter: 2015Q3

REPORT INFORMATION
  Report Type: Spontaneous
  Country: US (occurrence: US)
  Receive Date: 20131204
  Receipt Date: 20150804
  Transmission Date: 20151125
  Serious: No
  Sender: FDA-Public Use
  Company Number: US-GILEAD-2009-0022308

PATIENT
  Age: 73 Year
  Sex: Female

DRUGS (10)
  1. GONINI JUICE [Concomitant]
  2. CRESTOR [Concomitant]
     Active Substance: ROSUVASTATIN CALCIUM
  3. LETAIRIS [Suspect]
     Active Substance: AMBRISENTAN
     Indication: PULMONARY ARTERIAL HYPERTENSION
     Route: 048
     Dates: start: 20090501
  4. WARFARIN [Concomitant]
     Active Substance: WARFARIN
  5. ZYRTEC [Concomitant]
     Active Substance: CETIRIZINE HYDROCHLORIDE
  6. TYLENOL ARTHRITIS PAIN [Concomitant]
     Active Substance: ACETAMINOPHEN
  7. VITAMIN B COMPLEX [Concomitant]
     Active Substance: CYANOCOBALAMIN\DEXPANTHENOL\NIACINAMIDE\PYRIDOXINE HYDROCHLORIDE\RIBOFLAVIN 5^-PHOSPHATE SODIUM\THIAMINE HYDROCHLORIDE\VITAMIN B COMPLEX
  8. MIRALAX [Concomitant]
     Active Substance: POLYETHYLENE GLYCOL 3350
  9. FISH OIL/FLAX OIL [Concomitant]
  10. GAS-X [Concomitant]
     Active Substance: DIMETHICONE

REACTIONS (6)
  - Asthenia [Unknown]
  - Palpitations [Unknown]
  - Dizziness [Unknown]
  - Fatigue [Unknown]
  - Dyspnoea [Unknown]
  - Headache [Unknown]
